FAERS Safety Report 5948711-0 (Version None)
Quarter: 2008Q4

REPORT INFORMATION
  Report Type: 
  Country: None (occurrence: None)
  Receive Date: 20081111
  Receipt Date: 20081027
  Transmission Date: 20090506
  Serious: Yes (Hospitalization, Other)
  Sender: FDA-Public Use
  Company Number: US-ELI_LILLY_AND_COMPANY-US200810006164

PATIENT
  Sex: Female
  Weight: 67.12 kg

DRUGS (17)
  1. GEMZAR [Suspect]
     Indication: METASTATIC NEOPLASM
     Dosage: 1690 MG, OTHER
     Route: 042
     Dates: start: 20081007
  2. XELODA [Concomitant]
     Indication: METASTATIC NEOPLASM
     Dosage: 1 G, OTHER
     Dates: start: 20081007
  3. DILAUDID [Concomitant]
     Indication: BREAKTHROUGH PAIN
     Dosage: 2 MG, AS NEEDED
     Dates: start: 20081001
  4. OXYCONTIN [Concomitant]
     Indication: PAIN
     Dosage: 10 MG, 2/D
     Dates: start: 20081007
  5. PRILOSEC [Concomitant]
     Dosage: 20 MG, DAILY (1/D)
     Route: 048
  6. DIOVAN [Concomitant]
     Dosage: 80 MG, DAILY (1/D)
     Route: 048
  7. GLUCOPHAGE [Concomitant]
     Dosage: 1000 MG, 2/D
     Route: 048
  8. CITALOPRAM HYDROBROMIDE [Concomitant]
     Dosage: 20 MG, DAILY (1/D)
     Route: 048
  9. ACTOS [Concomitant]
     Dosage: 45 MG, DAILY (1/D)
     Route: 048
  10. LIPITOR [Concomitant]
     Dosage: 20 MG, DAILY (1/D)
     Route: 048
  11. ESTROGEL [Concomitant]
     Dosage: 50 MG, DAILY (1/D)
  12. TRAVATAN [Concomitant]
     Dosage: 1 GTT, DAILY (1/D)
     Route: 047
  13. ATIVAN [Concomitant]
     Indication: ANXIETY
     Dosage: 1 MG, AS NEEDED
     Route: 048
  14. PHENERGAN HCL [Concomitant]
     Indication: NAUSEA
     Dosage: 25 MG, AS NEEDED
     Route: 048
  15. COMPAZINE [Concomitant]
     Indication: NAUSEA
     Dosage: 10 MG, UNK
     Route: 048
  16. SENOKOT [Concomitant]
     Dosage: 2 D/F, AS NEEDED
     Route: 048
  17. MULTIVITAMINS PLUS IRON [Concomitant]

REACTIONS (10)
  - ABDOMINAL DISTENSION [None]
  - ASCITES [None]
  - CONSTIPATION [None]
  - DIARRHOEA [None]
  - HYDRONEPHROSIS [None]
  - INTESTINAL OBSTRUCTION [None]
  - NAUSEA [None]
  - OESOPHAGEAL DILATATION [None]
  - URINARY TRACT INFECTION [None]
  - VOMITING [None]
